FAERS Safety Report 7386966-9 (Version None)
Quarter: 2011Q1

REPORT INFORMATION
  Report Type: 
  Country: None (occurrence: None)
  Receive Date: 20110331
  Receipt Date: 20110322
  Transmission Date: 20110831
  Serious: Yes (Hospitalization)
  Sender: FDA-Public Use
  Company Number: NL-TEVA-273470ISR

PATIENT
  Sex: Female
  Weight: 63 kg

DRUGS (5)
  1. ADALIMUMAB [Suspect]
     Indication: RHEUMATOID ARTHRITIS
     Dates: start: 20040601, end: 20100826
  2. METHOTREXATE [Suspect]
     Indication: RHEUMATOID ARTHRITIS
     Dates: start: 20030728, end: 20101103
  3. CALCICHEW D3 [Concomitant]
     Dosage: 500/400
     Dates: start: 20100701
  4. RISEDRONATE SODIUM [Concomitant]
     Dates: start: 20030701
  5. PANTOPRAZOLE [Concomitant]
     Dates: start: 20100701

REACTIONS (1)
  - NEUROENDOCRINE CARCINOMA OF THE SKIN [None]
